FAERS Safety Report 15478433 (Version 2)
Quarter: 2018Q4

REPORT INFORMATION
  Report Type: Spontaneous
  Country: JP (occurrence: JP)
  Receive Date: 20181009
  Receipt Date: 20181010
  Transmission Date: 20190205
  Serious: Yes (Other)
  Sender: FDA-Public Use
  Company Number: JP-TEVA-2018-JP-000304J

PATIENT
  Age: 87 Year
  Sex: Female

DRUGS (2)
  1. PRINK INJECTION 10 MICROGRAM [Suspect]
     Active Substance: ALPROSTADIL
     Route: 042
     Dates: start: 20180124
  2. PRINK INJECTION 10 MICROGRAM [Suspect]
     Active Substance: ALPROSTADIL
     Indication: PRODUCT USED FOR UNKNOWN INDICATION
     Route: 042
     Dates: start: 20180119, end: 20180123

REACTIONS (1)
  - Angioedema [Unknown]

NARRATIVE: CASE EVENT DATE: 20180123
